FAERS Safety Report 19814874 (Version 1)
Quarter: 2021Q3

REPORT INFORMATION
  Report Type: Spontaneous
  Country: US (occurrence: US)
  Receive Date: 20210910
  Receipt Date: 20210910
  Transmission Date: 20211014
  Serious: No
  Sender: FDA-Public Use
  Company Number: US-XTTRIUM LABORATORIES, INC-2118237

PATIENT
  Sex: Female

DRUGS (1)
  1. SCRUB CARE EXIDINE?2 CHG [Suspect]
     Active Substance: CHLORHEXIDINE GLUCONATE
     Route: 003

REACTIONS (1)
  - Rash [Unknown]
